FAERS Safety Report 9123368 (Version 1)
Quarter: 2013Q1

REPORT INFORMATION
  Report Type: Spontaneous
  Country: US (occurrence: None)
  Receive Date: 20130131
  Receipt Date: 20130131
  Transmission Date: 20140127
  Serious: Yes (Death)
  Sender: FDA-Public Use
  Company Number: DKLU1088361

PATIENT
  Age: 51 Year
  Sex: Female

DRUGS (4)
  1. DESOXYN [Suspect]
     Indication: PRODUCT USED FOR UNKNOWN INDICATION
  2. METHADONE (METHADONE) [Suspect]
  3. IMIPRAMINE [Suspect]
  4. ALPRAZOLAM (ALPRAZOLAM) [Suspect]

REACTIONS (1)
  - Completed suicide [None]
